FAERS Safety Report 7477771-3 (Version None)
Quarter: 2011Q2

REPORT INFORMATION
  Report Type: 
  Country: None (occurrence: None)
  Receive Date: 20110513
  Receipt Date: 20110207
  Transmission Date: 20111010
  Serious: No
  Sender: FDA-Public Use
  Company Number: A0912273A

PATIENT
  Age: 37 Year

DRUGS (3)
  1. TREXIMET [Suspect]
     Indication: MIGRAINE
     Dosage: 1TAB SINGLE DOSE
     Route: 048
     Dates: start: 20110121
  2. SYMBICORT [Concomitant]
  3. CARDIZEM CD [Concomitant]

REACTIONS (3)
  - CHEST DISCOMFORT [None]
  - MIGRAINE [None]
  - NECK PAIN [None]
